FAERS Safety Report 5393019-8 (Version None)
Quarter: 2007Q3

REPORT INFORMATION
  Report Type: 
  Country: None (occurrence: None)
  Receive Date: 20070719
  Receipt Date: 20070704
  Transmission Date: 20080115
  Serious: Yes (Hospitalization)
  Sender: FDA-Public Use
  Company Number: GXKR2007TR05806

PATIENT
  Age: 16 Year
  Sex: Female

DRUGS (3)
  1. PROPAFENONE HCL [Suspect]
     Indication: SUICIDE ATTEMPT
     Dosage: 15 DF, ONCE/SINGLE, ORAL
     Route: 048
  2. DIGOXIN [Suspect]
     Indication: SUICIDE ATTEMPT
     Dosage: 20 DF, ONCE/SINGLE, ORAL
     Route: 048
  3. WARFARIN SODIUM [Suspect]
     Indication: SUICIDE ATTEMPT
     Dosage: 32 DF, ONCE/SINGLE, ORAL
     Route: 048

REACTIONS (8)
  - CARDIOACTIVE DRUG LEVEL ABOVE THERAPEUTIC [None]
  - CARDIOTOXICITY [None]
  - DRUG INTERACTION [None]
  - HYPOTENSION [None]
  - INTERNATIONAL NORMALISED RATIO INCREASED [None]
  - MULTIPLE DRUG OVERDOSE INTENTIONAL [None]
  - SINUS BRADYCARDIA [None]
  - SUICIDE ATTEMPT [None]
